FAERS Safety Report 9001405 (Version 3)
Quarter: 2013Q1

REPORT INFORMATION
  Report Type: Spontaneous
  Country: US (occurrence: US)
  Receive Date: 20130107
  Receipt Date: 20130130
  Transmission Date: 20140127
  Serious: Yes (Death, Hospitalization, Other)
  Sender: FDA-Public Use
  Company Number: US-BAXTER-2013BAX000140

PATIENT
  Age: 72 Year
  Sex: Male

DRUGS (2)
  1. DIANEAL LOW CALCIUM [Suspect]
     Indication: PERITONEAL DIALYSIS
     Route: 033
     Dates: start: 20110425
  2. DIANEAL LOW CALCIUM (ULTRABAG) [Suspect]
     Indication: PERITONEAL DIALYSIS
     Route: 033
     Dates: start: 20110425

REACTIONS (7)
  - Death [Fatal]
  - Pneumonia [Recovering/Resolving]
  - Sepsis [Recovering/Resolving]
  - Cardiac disorder [Recovering/Resolving]
  - Hypoalbuminaemia [Recovering/Resolving]
  - Ejection fraction decreased [Recovering/Resolving]
  - Condition aggravated [Recovering/Resolving]
